FAERS Safety Report 4744894-9 (Version None)
Quarter: 2005Q3

REPORT INFORMATION
  Report Type: 
  Country: None (occurrence: None)
  Receive Date: 20050811
  Receipt Date: 20050726
  Transmission Date: 20060218
  Serious: Yes (Hospitalization)
  Sender: FDA-Public Use
  Company Number: 2005BI012420

PATIENT
  Age: 41 Year
  Sex: Male

DRUGS (1)
  1. AVONEX [Suspect]
     Indication: MULTIPLE SCLEROSIS
     Dosage: 30 UG;QW;IM
     Route: 030
     Dates: start: 20050307

REACTIONS (6)
  - ABASIA [None]
  - AMNESIA [None]
  - CONDITION AGGRAVATED [None]
  - FALL [None]
  - MALAISE [None]
  - MULTIPLE SCLEROSIS [None]
